FAERS Safety Report 17428498 (Version 1)
Quarter: 2020Q1

REPORT INFORMATION
  Report Type: Spontaneous
  Country: US (occurrence: US)
  Receive Date: 20200214
  Receipt Date: 20200214
  Transmission Date: 20200409
  Serious: Yes (Life-Threatening)
  Sender: FDA-Public Use
  Company Number: None

PATIENT
  Age: 81 Year
  Sex: Female
  Weight: 82 kg

DRUGS (23)
  1. NITROFURANTOIN 100 MG [Concomitant]
     Active Substance: NITROFURANTOIN
  2. DILTIAZEM 360 MG [Concomitant]
  3. METFORMIN [Concomitant]
     Active Substance: METFORMIN HYDROCHLORIDE
  4. METHOTREXATE 50 MG INJ [Concomitant]
  5. VICODIN [Concomitant]
     Active Substance: ACETAMINOPHEN\HYDROCODONE BITARTRATE
  6. ASPIRIN 81 MG [Concomitant]
     Active Substance: ASPIRIN
  7. ESOMEPRAZOLE 40 MG [Concomitant]
     Active Substance: ESOMEPRAZOLE
  8. POTASSIUM 10 MEQ [Concomitant]
  9. LEVOTHYROXINE 88 MCG [Concomitant]
     Active Substance: LEVOTHYROXINE
  10. GLIPIZIDE 5 MG [Concomitant]
  11. DULOXETINE 60 [Concomitant]
     Active Substance: DULOXETINE
  12. MIDAZOLAM HYDROCHLORIDE. [Suspect]
     Active Substance: MIDAZOLAM HYDROCHLORIDE
     Indication: SEDATION
     Dosage: ?          OTHER FREQUENCY:ONCE;?
     Route: 040
  13. APIXABAN 5 MG [Concomitant]
     Active Substance: APIXABAN
  14. LORATADINE 10 MG [Concomitant]
     Active Substance: LORATADINE
  15. LOSARTAN 25 MG [Concomitant]
     Active Substance: LOSARTAN
  16. HUMIRA [Concomitant]
     Active Substance: ADALIMUMAB
  17. IMIPRAMINE 50 MG [Concomitant]
  18. GABAPENTIN 300 MG [Concomitant]
     Active Substance: GABAPENTIN
  19. GABAPENTIN 100 MG [Concomitant]
     Active Substance: GABAPENTIN
  20. FENTANYL. [Suspect]
     Active Substance: FENTANYL
     Indication: SEDATION
     Dosage: ?          OTHER FREQUENCY:ONCE;?
     Route: 040
  21. FUROSEMIDE 20 MG [Concomitant]
     Active Substance: FUROSEMIDE
  22. FOLIC ACID 1 MG [Concomitant]
  23. ATORVASTIN 40 MG [Concomitant]

REACTIONS (3)
  - Oxygen saturation decreased [None]
  - Procedural complication [None]
  - Loss of consciousness [None]

NARRATIVE: CASE EVENT DATE: 20190211
